FAERS Safety Report 6756659-7 (Version None)
Quarter: 2010Q2

REPORT INFORMATION
  Report Type: 
  Country: None (occurrence: None)
  Receive Date: 20100604
  Receipt Date: 20100531
  Transmission Date: 20101027
  Serious: Yes (Hospitalization)
  Sender: FDA-Public Use
  Company Number: FR-MERCK-1005FRA00111

PATIENT
  Age: 14 Year
  Sex: Female

DRUGS (8)
  1. PRIMAXIN [Suspect]
     Indication: BRAIN ABSCESS
     Route: 042
     Dates: start: 20100219, end: 20100402
  2. PRIMAXIN [Suspect]
     Indication: ASPERGILLOSIS
     Route: 042
     Dates: start: 20100219, end: 20100402
  3. ACYCLOVIR [Suspect]
     Route: 042
     Dates: start: 20100220, end: 20100414
  4. FLUCYTOSINE [Concomitant]
     Route: 065
     Dates: start: 20100324
  5. SERTRALINE HYDROCHLORIDE [Concomitant]
     Route: 048
     Dates: start: 20100316, end: 20100405
  6. SULFAMETHOXAZOLE AND TRIMETHOPRIM [Concomitant]
     Route: 065
     Dates: start: 20091230, end: 20100414
  7. TERBINAFINE [Suspect]
     Route: 048
     Dates: start: 20100225, end: 20100324
  8. VANCOMYCIN [Suspect]
     Route: 042
     Dates: start: 20100219, end: 20100402

REACTIONS (2)
  - DERMATITIS EXFOLIATIVE [None]
  - SKIN EXFOLIATION [None]
